FAERS Safety Report 26132336 (Version 1)
Quarter: 2025Q4

REPORT INFORMATION
  Report Type: Spontaneous
  Country: US (occurrence: US)
  Receive Date: 20251208
  Receipt Date: 20251208
  Transmission Date: 20260118
  Serious: No
  Sender: ABBVIE
  Company Number: US-ABBVIE-6578261

PATIENT
  Sex: Female

DRUGS (4)
  1. BOTOX [Suspect]
     Active Substance: ONABOTULINUMTOXINA
     Indication: Muscle spasticity
     Dosage: TIME INTERVAL: AS NECESSARY: DOSE - 50 UNITS BILATERALLY IN EACH TRAPEZIUS, TOTAL OF?100 UNITS
     Route: 065
     Dates: start: 20251104, end: 20251104
  2. BOTOX [Suspect]
     Active Substance: ONABOTULINUMTOXINA
     Indication: Muscle spasticity
     Dosage: TIME INTERVAL: AS NECESSARY: DOSE - 50 UNITS BILATERALLY IN EACH TRAPEZIUS, TOTAL OF?100 UNITS, T...
     Route: 065
     Dates: start: 2015, end: 2015
  3. BOTOX [Suspect]
     Active Substance: ONABOTULINUMTOXINA
     Indication: Muscle spasticity
     Dosage: TIME INTERVAL: AS NECESSARY: DOSE - 50 UNITS BILATERALLY IN EACH TRAPEZIUS, TOTAL OF?100 UNITS
     Route: 065
     Dates: start: 20250812, end: 20250812
  4. BOTOX [Suspect]
     Active Substance: ONABOTULINUMTOXINA
     Indication: Muscle spasticity
     Dosage: TIME INTERVAL: AS NECESSARY: DOSE - 50 UNITS BILATERALLY IN EACH TRAPEZIUS, TOTAL OF?100 UNITS
     Route: 065
     Dates: start: 20250513, end: 20250513

REACTIONS (2)
  - Balance disorder [Unknown]
  - Pain [Not Recovered/Not Resolved]

NARRATIVE: CASE EVENT DATE: 20250501
